FAERS Safety Report 10476814 (Version 1)
Quarter: 2014Q3

REPORT INFORMATION
  Report Type: Spontaneous
  Country: IE (occurrence: IE)
  Receive Date: 20140926
  Receipt Date: 20140926
  Transmission Date: 20150326
  Serious: Yes (Death)
  Sender: FDA-Public Use
  Company Number: IE-AMGEN-IRLSP2014073101

PATIENT
  Age: 62 Year
  Sex: Male

DRUGS (3)
  1. DUPHALAC [Concomitant]
     Active Substance: LACTULOSE
     Dosage: UNK
  2. MOVICOL                            /01749801/ [Concomitant]
     Dosage: UNK
  3. NEULASTA [Suspect]
     Active Substance: PEGFILGRASTIM
     Indication: COLORECTAL CANCER METASTATIC
     Dosage: 6 MG/0.6 MLS, POST CHEMO EVERY TWO WEEKS
     Route: 058
     Dates: start: 20140816

REACTIONS (1)
  - Death [Fatal]

NARRATIVE: CASE EVENT DATE: 20140901
